FAERS Safety Report 19464354 (Version 7)
Quarter: 2021Q3

REPORT INFORMATION
  Report Type: Report from Study
  Country: US (occurrence: US)
  Receive Date: 20210626
  Receipt Date: 20210920
  Transmission Date: 20211014
  Serious: No
  Sender: FDA-Public Use
  Company Number: NVSC2021US135180

PATIENT
  Age: 58 Year
  Sex: Female

DRUGS (2)
  1. COSENTYX [Suspect]
     Active Substance: SECUKINUMAB
     Dosage: 150 MG, QW
     Route: 058
  2. COSENTYX [Suspect]
     Active Substance: SECUKINUMAB
     Indication: PSORIATIC ARTHROPATHY
     Dosage: 150 MG, QMO
     Route: 030
     Dates: start: 20210501

REACTIONS (9)
  - Arthralgia [Unknown]
  - Injection site extravasation [Unknown]
  - Nasal congestion [Not Recovered/Not Resolved]
  - Cough [Recovering/Resolving]
  - Pain in extremity [Unknown]
  - Respiratory disorder [Unknown]
  - Incorrect route of product administration [Unknown]
  - Bronchitis [Recovering/Resolving]
  - Gait disturbance [Unknown]

NARRATIVE: CASE EVENT DATE: 20210613
